FAERS Safety Report 9987085 (Version 1)
Quarter: 2014Q1

REPORT INFORMATION
  Report Type: Report from Study
  Country: US (occurrence: US)
  Receive Date: 20140307
  Receipt Date: 20140307
  Transmission Date: 20141002
  Serious: No
  Sender: FDA-Public Use
  Company Number: US-ABBVIE-13P-163-1082506-00

PATIENT
  Age: 46 Year
  Sex: Female

DRUGS (11)
  1. HUMIRA [Suspect]
     Indication: PSORIATIC ARTHROPATHY
     Route: 058
     Dates: start: 201303
  2. LEVOTHYROXINE [Concomitant]
     Indication: PRODUCT USED FOR UNKNOWN INDICATION
  3. GABAPENTIN [Concomitant]
     Indication: PRODUCT USED FOR UNKNOWN INDICATION
  4. WELLBUTRIN [Concomitant]
     Indication: PRODUCT USED FOR UNKNOWN INDICATION
  5. PRILOSEC [Concomitant]
     Indication: PRODUCT USED FOR UNKNOWN INDICATION
  6. SUDAFED [Concomitant]
     Indication: PRODUCT USED FOR UNKNOWN INDICATION
  7. VIT B12 [Concomitant]
     Indication: PRODUCT USED FOR UNKNOWN INDICATION
  8. PROBIOTIC [Concomitant]
     Indication: PRODUCT USED FOR UNKNOWN INDICATION
  9. COMPLETE MULTIVITAMIN [Concomitant]
     Indication: PRODUCT USED FOR UNKNOWN INDICATION
  10. VIT D [Concomitant]
     Indication: PRODUCT USED FOR UNKNOWN INDICATION
  11. TRIPLE OMEGA COMPLEX 3-6-9 [Concomitant]
     Indication: PRODUCT USED FOR UNKNOWN INDICATION

REACTIONS (1)
  - Nasopharyngitis [Unknown]
